FAERS Safety Report 25486908 (Version 3)
Quarter: 2025Q3

REPORT INFORMATION
  Report Type: Spontaneous
  Country: CA (occurrence: CA)
  Receive Date: 20250627
  Receipt Date: 20250729
  Transmission Date: 20251020
  Serious: No
  Sender: EMERGENT BIOSOLUTIONS
  Company Number: CA-EMERGENT BIOSOLUTIONS-25000082

PATIENT

DRUGS (1)
  1. NARCAN [Suspect]
     Active Substance: NALOXONE HYDROCHLORIDE
     Indication: Product used for unknown indication
     Route: 065

REACTIONS (1)
  - Product outer packaging issue [Unknown]

NARRATIVE: CASE EVENT DATE: 20250616
